FAERS Safety Report 7782065-2 (Version None)
Quarter: 2011Q3

REPORT INFORMATION
  Report Type: 
  Country: None (occurrence: None)
  Receive Date: 20110927
  Receipt Date: 20110923
  Transmission Date: 20111222
  Serious: Yes (Death, Other)
  Sender: FDA-Public Use
  Company Number: GB-ABBOTT-11P-167-0852889-00

PATIENT
  Age: 33 Year
  Sex: Male
  Weight: 80 kg

DRUGS (3)
  1. PREDNISOLONE [Concomitant]
     Indication: PRODUCT USED FOR UNKNOWN INDICATION
  2. HUMIRA [Suspect]
     Indication: CROHN'S DISEASE
     Route: 058
  3. AZATHIOPRINE [Concomitant]
     Indication: PRODUCT USED FOR UNKNOWN INDICATION

REACTIONS (5)
  - PANCYTOPENIA [None]
  - MULTI-ORGAN FAILURE [None]
  - LYMPHOHISTIOCYTOSIS [None]
  - NON-HODGKIN'S LYMPHOMA [None]
  - MALAISE [None]
